FAERS Safety Report 9409607 (Version 14)
Quarter: 2015Q3

REPORT INFORMATION
  Report Type: Report from Study
  Country: CA (occurrence: CA)
  Receive Date: 20130719
  Receipt Date: 20150807
  Transmission Date: 20151125
  Serious: Yes (Hospitalization, Other)
  Sender: FDA-Public Use
  Company Number: PHHY2013CA075521

PATIENT
  Age: 46 Year
  Sex: Male

DRUGS (3)
  1. SANDOSTATIN [Suspect]
     Active Substance: OCTREOTIDE ACETATE
     Indication: NEUROENDOCRINE TUMOUR
     Dosage: 100 UG, TID
     Route: 058
     Dates: start: 20130622
  2. AFINITOR [Suspect]
     Active Substance: EVEROLIMUS
     Indication: NEUROENDOCRINE TUMOUR
     Dosage: 10 MG, QD
     Route: 048
  3. SANDOSTATIN LAR DEPOT [Suspect]
     Active Substance: OCTREOTIDE ACETATE
     Indication: NEUROENDOCRINE TUMOUR
     Dosage: 30 MG, QMO (EVERY 4 WEEKS)
     Route: 030
     Dates: start: 20130821

REACTIONS (15)
  - Abdominal pain [Unknown]
  - Rales [Unknown]
  - Neuralgia [Recovered/Resolved]
  - Hepatic neoplasm [Not Recovered/Not Resolved]
  - Malignant neoplasm progression [Not Recovered/Not Resolved]
  - Musculoskeletal pain [Unknown]
  - Blood bilirubin increased [Recovering/Resolving]
  - Neoplasm [Not Recovered/Not Resolved]
  - Blood pressure increased [Unknown]
  - Wound dehiscence [Unknown]
  - Wound infection [Recovered/Resolved]
  - Pyrexia [Recovered/Resolved]
  - Hepatic enzyme increased [Unknown]
  - Chest pain [Recovering/Resolving]
  - Body temperature decreased [Unknown]

NARRATIVE: CASE EVENT DATE: 20130711
